FAERS Safety Report 24745413 (Version 1)
Quarter: 2024Q4

REPORT INFORMATION
  Report Type: Spontaneous
  Country: IN (occurrence: None)
  Receive Date: 20241217
  Receipt Date: 20241217
  Transmission Date: 20250115
  Serious: Yes (Other)
  Sender: ENCUBE ETHICALS
  Company Number: IN-Encube-001449

PATIENT
  Age: 66 Year
  Sex: Male

DRUGS (1)
  1. TRIAMCINOLONE ACETONIDE [Suspect]
     Active Substance: TRIAMCINOLONE ACETONIDE
     Indication: Cataract
     Dosage: (6 MG/0.15 ML) DEPOT INJECTION

REACTIONS (2)
  - Central serous chorioretinopathy [Recovered/Resolved]
  - Off label use [Unknown]
